FAERS Safety Report 15625730 (Version 2)
Quarter: 2018Q4

REPORT INFORMATION
  Report Type: Spontaneous
  Country: TR (occurrence: TR)
  Receive Date: 20181116
  Receipt Date: 20181127
  Transmission Date: 20190205
  Serious: Yes (Hospitalization)
  Sender: FDA-Public Use
  Company Number: PHHY2018TR153130

PATIENT
  Age: 5 Year
  Sex: Male

DRUGS (1)
  1. BAKSO (BIFIDOBACTERIUM ANIMALIS\LACTOBACILLUS ACIDOPHILUS) [Suspect]
     Active Substance: PROBIOTICS NOS
     Indication: PRODUCT USED FOR UNKNOWN INDICATION
     Dosage: 1 DF (1X6)
     Route: 048
     Dates: start: 20181103, end: 20181104

REACTIONS (1)
  - Rash generalised [Recovered/Resolved]

NARRATIVE: CASE EVENT DATE: 20181103
